FAERS Safety Report 23450133 (Version 1)
Quarter: 2024Q1

REPORT INFORMATION
  Report Type: Spontaneous
  Country: GR (occurrence: GR)
  Receive Date: 20240129
  Receipt Date: 20240129
  Transmission Date: 20240410
  Serious: Yes (Other)
  Sender: FDA-Public Use
  Company Number: GR-009507513-2401GRC014675

PATIENT
  Age: 60 Year
  Sex: Female

DRUGS (1)
  1. WELIREG [Suspect]
     Active Substance: BELZUTIFAN
     Indication: Von Hippel-Lindau disease
     Dosage: UNK
     Route: 048

REACTIONS (4)
  - Diabetes mellitus [Unknown]
  - Anaemia [Unknown]
  - Arthralgia [Unknown]
  - Fatigue [Unknown]
